FAERS Safety Report 25808496 (Version 1)
Quarter: 2025Q3

REPORT INFORMATION
  Report Type: Report from Study
  Country: CA (occurrence: CA)
  Receive Date: 20250916
  Receipt Date: 20250916
  Transmission Date: 20251020
  Serious: Yes (Other)
  Sender: AMGEN
  Company Number: CA-BEH-2025218601

PATIENT
  Sex: Male

DRUGS (1)
  1. AVACOPAN [Suspect]
     Active Substance: AVACOPAN
     Indication: Product used for unknown indication
     Dosage: 20 MILLIGRAM, QD (10 MG, BID)
     Route: 048
     Dates: start: 20241025, end: 20250905

REACTIONS (1)
  - Dialysis [Unknown]
